FAERS Safety Report 9316619 (Version 2)
Quarter: 2013Q3

REPORT INFORMATION
  Report Type: Report from Study
  Country: EG (occurrence: EG)
  Receive Date: 20130530
  Receipt Date: 20130718
  Transmission Date: 20140515
  Serious: Yes (Hospitalization)
  Sender: FDA-Public Use
  Company Number: EG-US-EMD SERONO, INC.-7208227

PATIENT
  Age: 38 Year
  Sex: Female
  Weight: 65 kg

DRUGS (4)
  1. LUCRIN [Suspect]
     Indication: IN VITRO FERTILISATION
     Dosage: 5 UNITS
     Route: 058
     Dates: start: 20130131, end: 20130218
  2. LUVERIS [Suspect]
     Indication: IN VITRO FERTILISATION
  3. GONAL-F [Suspect]
     Indication: IN VITRO FERTILISATION
  4. UNASYN                             /00903601/ [Concomitant]
     Indication: ANTIBIOTIC THERAPY
     Route: 048
     Dates: start: 20130314, end: 20130317

REACTIONS (1)
  - Ovarian cyst [Recovered/Resolved]
